FAERS Safety Report 8589342-6 (Version None)
Quarter: 2012Q3

REPORT INFORMATION
  Report Type: 
  Country: None (occurrence: None)
  Receive Date: 20120813
  Receipt Date: 20120802
  Transmission Date: 20120928
  Serious: Yes (Hospitalization, Other)
  Sender: FDA-Public Use
  Company Number: FR-ASTRAZENECA-2012SE55008

PATIENT
  Age: 1 Year
  Sex: Male

DRUGS (1)
  1. EMLA [Suspect]
     Route: 061
     Dates: start: 20120323, end: 20120323

REACTIONS (4)
  - LOCAL REACTION [None]
  - APPLICATION SITE BURN [None]
  - APPLICATION SITE EXFOLIATION [None]
  - APPLICATION SITE ERYTHEMA [None]
